FAERS Safety Report 8780823 (Version 1)
Quarter: 2012Q4

REPORT INFORMATION
  Report Type: Report from Study
  Country: US (occurrence: US)
  Receive Date: 20120913
  Receipt Date: 20120913
  Transmission Date: 20130627
  Serious: No
  Sender: FDA-Public Use
  Company Number: US-VERTEX PHARMACEUTICAL INC.-AE-2012-008238

PATIENT

DRUGS (5)
  1. INCIVEK [Suspect]
     Indication: HEPATITIS C
     Route: 048
     Dates: start: 20120528
  2. RIBAVIRIN [Concomitant]
     Indication: HEPATITIS C
     Dates: start: 20120528
  3. PEGASYS [Concomitant]
     Indication: HEPATITIS C
     Route: 058
     Dates: start: 20120528
  4. LISINOPRIL/HCTZ [Concomitant]
  5. OMEGA BERRY [Concomitant]

REACTIONS (4)
  - Pyrexia [Unknown]
  - Pain [Unknown]
  - Blood pressure increased [Unknown]
  - Heart rate increased [Unknown]
